FAERS Safety Report 23717735 (Version 1)
Quarter: 2024Q2

REPORT INFORMATION
  Report Type: Spontaneous
  Country: US (occurrence: US)
  Receive Date: 20240408
  Receipt Date: 20240408
  Transmission Date: 20240716
  Serious: Yes (Other)
  Sender: FDA-Public Use
  Company Number: US-STRIDES ARCOLAB LIMITED-2024SP003991

PATIENT
  Age: 50 Year
  Sex: Male

DRUGS (13)
  1. CETIRIZINE [Suspect]
     Active Substance: CETIRIZINE HYDROCHLORIDE
     Indication: Solar urticaria
     Dosage: UNK, QD (60-80MG)
     Route: 048
  2. CETIRIZINE [Suspect]
     Active Substance: CETIRIZINE HYDROCHLORIDE
     Dosage: 100 MILLIGRAM, QD
     Route: 048
  3. CETIRIZINE [Suspect]
     Active Substance: CETIRIZINE HYDROCHLORIDE
     Dosage: 20 MILLIGRAM, QD
     Route: 048
  4. CETIRIZINE [Suspect]
     Active Substance: CETIRIZINE HYDROCHLORIDE
     Dosage: 20 MILLIGRAM, BID
     Route: 048
  5. HYDROXYZINE HYDROCHLORIDE [Suspect]
     Active Substance: HYDROXYZINE HYDROCHLORIDE
     Indication: Solar urticaria
     Dosage: UNK
     Route: 048
  6. RANITIDINE [Suspect]
     Active Substance: RANITIDINE
     Indication: Solar urticaria
     Dosage: UNK
     Route: 065
  7. MONTELUKAST [Suspect]
     Active Substance: MONTELUKAST SODIUM
     Indication: Solar urticaria
     Dosage: UNK
     Route: 065
  8. LEVOCETIRIZINE [Suspect]
     Active Substance: LEVOCETIRIZINE
     Indication: Solar urticaria
     Dosage: UNK
     Route: 048
  9. FAMOTIDINE [Suspect]
     Active Substance: FAMOTIDINE
     Indication: Solar urticaria
     Dosage: UNK
     Route: 065
  10. OMALIZUMAB [Concomitant]
     Active Substance: OMALIZUMAB
     Indication: Solar urticaria
     Dosage: 300 MILLIGRAM, ONCE A MONTH
     Route: 065
  11. OMALIZUMAB [Concomitant]
     Active Substance: OMALIZUMAB
     Dosage: 300 MILLIGRAM, TWICE A MONTH
     Route: 065
  12. DUPILUMAB [Concomitant]
     Active Substance: DUPILUMAB
     Indication: Solar urticaria
     Dosage: 600 MILLIGRAM (LOADING DOSE)
     Route: 065
  13. DUPILUMAB [Concomitant]
     Active Substance: DUPILUMAB
     Dosage: 300 MILLIGRAM, EVERY 2 WEEKS
     Route: 065

REACTIONS (4)
  - Treatment failure [Unknown]
  - Rebound effect [Recovered/Resolved]
  - Solar urticaria [Recovered/Resolved]
  - Off label use [Unknown]
